FAERS Safety Report 25705834 (Version 2)
Quarter: 2025Q4

REPORT INFORMATION
  Report Type: Spontaneous
  Country: US (occurrence: US)
  Receive Date: 20250820
  Receipt Date: 20251007
  Transmission Date: 20260118
  Serious: No
  Sender: PFIZER
  Company Number: US-PFIZER INC-PV202500099069

PATIENT
  Age: 40 Year
  Sex: Female
  Weight: 71.202 kg

DRUGS (5)
  1. BICILLIN L-A [Suspect]
     Active Substance: PENICILLIN G BENZATHINE
     Dosage: 1.2 MIU/2ML (ONE DOSE)
     Route: 030
     Dates: start: 20240708, end: 20240708
  2. DILTIAZEM COPHAR [Concomitant]
     Indication: Palpitations
     Dosage: 180 MG, DAILY
  3. METOPROLOL [Concomitant]
     Active Substance: METOPROLOL
     Indication: Hypertension
     Dosage: 25 MG, DAILY
  4. ROPINIROLE [Concomitant]
     Active Substance: ROPINIROLE
     Indication: Restless legs syndrome
     Dosage: 0.5 MG, DAILY (AT BEDTIME)
  5. SERTRALINE [Concomitant]
     Active Substance: SERTRALINE HYDROCHLORIDE
     Indication: Depression
     Dosage: 100 MG, DAILY (1.5 TABS DAILY)

REACTIONS (1)
  - Recalled product administered [Recovered/Resolved]

NARRATIVE: CASE EVENT DATE: 20240708
